FAERS Safety Report 6886767-1 (Version None)
Quarter: 2010Q3

REPORT INFORMATION
  Report Type: 
  Country: None (occurrence: None)
  Receive Date: 20100730
  Receipt Date: 20100723
  Transmission Date: 20110219
  Serious: Yes (Death, Hospitalization)
  Sender: FDA-Public Use
  Company Number: CA-PFIZER INC-2010044502

PATIENT
  Age: 83 Year
  Sex: Male
  Weight: 82.086 kg

DRUGS (10)
  1. CELEBREX [Suspect]
     Indication: OEDEMA
     Dosage: 200 MG, 1X/DAY
     Route: 048
     Dates: start: 20100311, end: 20100311
  2. CELEBREX [Suspect]
     Indication: PAIN IN EXTREMITY
  3. ASPIRIN [Concomitant]
     Indication: ANGIOPATHY
     Dosage: 80 MG, DAILY
     Route: 048
  4. EXELON [Concomitant]
     Indication: DEMENTIA
     Dosage: 3 MG, 2X/DAY
     Route: 048
  5. ACETAMINOPHEN [Concomitant]
     Indication: PAIN
     Dosage: 2 X 325 MG, 4X/DAY
     Route: 048
  6. ISOSORBIDE MONONITRATE [Concomitant]
     Indication: CARDIAC DISORDER
     Dosage: 30 MG (1/2 60MG TABLET), 1X/DAY
     Route: 048
  7. PANTOLOC ^SOLVAY^ [Concomitant]
     Indication: DYSPEPSIA
     Dosage: 40 MG, 1X/DAY
     Route: 048
  8. RAMIPRIL [Concomitant]
     Indication: HYPERTENSION
     Dosage: 2.5 UNK, 1X/DAY
     Route: 048
  9. BISOPROLOL [Concomitant]
     Indication: HYPERTENSION
     Dosage: 5 UNK, 1X/DAY
     Route: 048
  10. AMLODIPINE [Concomitant]
     Indication: HYPERTENSION
     Dosage: 10 UNK, 1X/DAY
     Route: 048

REACTIONS (5)
  - MYOCARDIAL INFARCTION [None]
  - NAUSEA [None]
  - OEDEMA PERIPHERAL [None]
  - PAIN IN EXTREMITY [None]
  - VOMITING [None]
